FAERS Safety Report 8166517-1 (Version None)
Quarter: 2012Q1

REPORT INFORMATION
  Report Type: 
  Country: None (occurrence: None)
  Receive Date: 20120227
  Receipt Date: 20111006
  Transmission Date: 20120608
  Serious: Yes (Other)
  Sender: FDA-Public Use
  Company Number: US-MYLANLABS-2011S1021168

PATIENT
  Sex: Female

DRUGS (4)
  1. AMNESTEEM [Suspect]
     Indication: ACNE
     Route: 048
     Dates: start: 20070101, end: 20080501
  2. CLARAVIS [Suspect]
     Indication: ACNE
     Route: 048
     Dates: start: 20070101, end: 20080501
  3. ACCUTANE [Suspect]
     Indication: ACNE
     Route: 048
     Dates: start: 20070101, end: 20080501
  4. SOTRET [Suspect]
     Indication: ACNE
     Route: 048
     Dates: start: 20070101, end: 20080501

REACTIONS (1)
  - INFLAMMATORY BOWEL DISEASE [None]
